FAERS Safety Report 4873336-8 (Version None)
Quarter: 2006Q1

REPORT INFORMATION
  Report Type: 
  Country: None (occurrence: None)
  Receive Date: 20060105
  Receipt Date: 20051228
  Transmission Date: 20060701
  Serious: Yes (Disabling, Other)
  Sender: FDA-Public Use
  Company Number: US-JNJFOC-20051205927

PATIENT
  Sex: Female
  Weight: 63.5 kg

DRUGS (5)
  1. LEVAQUIN [Suspect]
     Indication: MENINGITIS
     Route: 048
  2. LEVAQUIN [Suspect]
     Route: 048
  3. TRIVORA-21 [Concomitant]
  4. TRIVORA-21 [Concomitant]
  5. THYROID TAB [Concomitant]
     Indication: THYROID DISORDER

REACTIONS (17)
  - AMENORRHOEA [None]
  - ARTHRALGIA [None]
  - ASTHENIA [None]
  - BLOOD PRESSURE INCREASED [None]
  - CHEST PAIN [None]
  - CHILLS [None]
  - DIARRHOEA [None]
  - DYSPNOEA [None]
  - EMOTIONAL DISORDER [None]
  - HEADACHE [None]
  - HEART RATE INCREASED [None]
  - HYPERTHYROIDISM [None]
  - PAIN IN JAW [None]
  - PYREXIA [None]
  - TENDON DISORDER [None]
  - TOOTHACHE [None]
  - WEIGHT DECREASED [None]
